FAERS Safety Report 7948967-9 (Version None)
Quarter: 2011Q4

REPORT INFORMATION
  Report Type: 
  Country: None (occurrence: None)
  Receive Date: 20111130
  Receipt Date: 20111125
  Transmission Date: 20120403
  Serious: Yes (Death, Hospitalization, Other)
  Sender: FDA-Public Use
  Company Number: JP-PFIZER INC-2011266104

PATIENT
  Age: 81 Year
  Sex: Male

DRUGS (8)
  1. PYRAZOLONES [Concomitant]
     Dosage: UNK
     Dates: start: 20100817, end: 20100817
  2. ANGIOTENSIN II ANTAGONISTS [Concomitant]
     Indication: HYPERTENSION
  3. AMIODARONE HCL [Concomitant]
     Dosage: 100 MG, UNK
     Route: 048
     Dates: start: 20100817
  4. PYRAZOLONES [Concomitant]
     Dosage: 1 PAC
     Route: 048
  5. ARGATROBAN [Suspect]
     Indication: EMBOLIC STROKE
     Dosage: 6 AMP
     Route: 041
     Dates: start: 20100812, end: 20100812
  6. WARFARIN SODIUM [Suspect]
     Indication: EMBOLIC STROKE
     Dosage: 2 MG, UNK
     Route: 048
     Dates: start: 20100812, end: 20100812
  7. TANATRIL ^ALGOL^ [Concomitant]
     Indication: HYPERTENSION
     Dosage: 10 MG, UNK
     Route: 048
     Dates: start: 20100817
  8. EDARAVONE [Suspect]
     Indication: EMBOLIC STROKE
     Dosage: 30 MG, 2X/DAY
     Route: 041
     Dates: start: 20100812, end: 20100825

REACTIONS (3)
  - GASTROINTESTINAL HAEMORRHAGE [None]
  - CEREBRAL INFARCTION [None]
  - HAEMORRHAGIC INFARCTION [None]
